FAERS Safety Report 17335875 (Version 2)
Quarter: 2020Q1

REPORT INFORMATION
  Report Type: Spontaneous
  Country: US (occurrence: US)
  Receive Date: 20200129
  Receipt Date: 20200130
  Transmission Date: 20200409
  Serious: No
  Sender: FDA-Public Use
  Company Number: US-009507513-2001USA005068

PATIENT
  Sex: Female

DRUGS (1)
  1. NUVARING [Suspect]
     Active Substance: ETHINYL ESTRADIOL\ETONOGESTREL
     Dosage: ONCE A WEEK FOR 3 WEEKS, THEN HAS ONE WEEK WITHOUT
     Route: 067

REACTIONS (4)
  - Incorrect product administration duration [Unknown]
  - Inappropriate schedule of product administration [Unknown]
  - No adverse event [Unknown]
  - Product prescribing error [Unknown]
